FAERS Safety Report 20795994 (Version 1)
Quarter: 2022Q2

REPORT INFORMATION
  Report Type: Spontaneous
  Country: AU (occurrence: AU)
  Receive Date: 20220506
  Receipt Date: 20220506
  Transmission Date: 20220721
  Serious: Yes (Other)
  Sender: FDA-Public Use
  Company Number: AU-GLAXOSMITHKLINE-AU2022GSK072205

PATIENT

DRUGS (3)
  1. LAMOTRIGINE [Suspect]
     Active Substance: LAMOTRIGINE
     Indication: Product used for unknown indication
     Dosage: 5000 MG
  2. ZOPICLONE [Suspect]
     Active Substance: ZOPICLONE
     Indication: Product used for unknown indication
     Dosage: UNK
  3. QUETIAPINE [Suspect]
     Active Substance: QUETIAPINE
     Indication: Product used for unknown indication
     Dosage: 3000 MG

REACTIONS (10)
  - Cardiotoxicity [Unknown]
  - Overdose [Unknown]
  - Somnolence [Unknown]
  - Heart rate increased [Unknown]
  - Hypotension [Unknown]
  - Electrocardiogram QRS complex abnormal [Unknown]
  - Condition aggravated [Unknown]
  - Electrocardiogram ST segment depression [Unknown]
  - Depressed level of consciousness [Unknown]
  - Blood pH increased [Unknown]
